FAERS Safety Report 8485356-5 (Version None)
Quarter: 2012Q3

REPORT INFORMATION
  Report Type: 
  Country: None (occurrence: None)
  Receive Date: 20120703
  Receipt Date: 20111209
  Transmission Date: 20120928
  Serious: Yes (Other)
  Sender: FDA-Public Use
  Company Number: US-ROCHE-1073582

PATIENT
  Sex: Male

DRUGS (5)
  1. COPEGUS [Suspect]
     Indication: HEPATITIS C
     Dosage: UNKNOWN
     Route: 065
     Dates: start: 20100401, end: 20100614
  2. COPEGUS [Suspect]
     Dosage: UNKNOWN
     Route: 065
     Dates: start: 20111202
  3. PEGASYS [Suspect]
     Indication: HEPATITIS C
     Dosage: UNKNOWN
     Route: 065
     Dates: start: 20100401, end: 20100614
  4. PEGASYS [Suspect]
     Dosage: UNKNOWN
     Route: 065
     Dates: start: 20111202
  5. OXYCODONE HCL [Concomitant]
     Indication: PAIN

REACTIONS (3)
  - LOSS OF CONSCIOUSNESS [None]
  - WHITE BLOOD CELL COUNT DECREASED [None]
  - RED BLOOD CELL COUNT DECREASED [None]
